FAERS Safety Report 6677082-X (Version None)
Quarter: 2010Q2

REPORT INFORMATION
  Report Type: 
  Country: None (occurrence: None)
  Receive Date: 20100412
  Receipt Date: 20100329
  Transmission Date: 20101027
  Serious: Yes (Hospitalization)
  Sender: FDA-Public Use
  Company Number: US-BAYER-201017422NA

PATIENT
  Age: 29 Year
  Sex: Female

DRUGS (5)
  1. BETASERON [Suspect]
     Indication: MULTIPLE SCLEROSIS
     Dosage: TOTAL DAILY DOSE: 8 MIU
     Route: 058
     Dates: start: 20081101, end: 20090701
  2. TYLENOL W/ CODEINE NO. 3 [Concomitant]
     Indication: HEADACHE
  3. STEROIDS [Concomitant]
     Indication: EYE DISORDER
  4. BACLOFEN [Concomitant]
  5. VITAMINS [Concomitant]

REACTIONS (7)
  - EYE DISORDER [None]
  - EYE INFLAMMATION [None]
  - EYE SWELLING [None]
  - HEADACHE [None]
  - MULTIPLE SCLEROSIS [None]
  - PARAESTHESIA [None]
  - PHOTOPHOBIA [None]
